FAERS Safety Report 6415861-4 (Version None)
Quarter: 2009Q4

REPORT INFORMATION
  Report Type: 
  Country: None (occurrence: None)
  Receive Date: 20091027
  Receipt Date: 20091013
  Transmission Date: 20100525
  Serious: Yes (Hospitalization)
  Sender: FDA-Public Use
  Company Number: FI-GENENTECH-292703

PATIENT
  Sex: Female

DRUGS (5)
  1. AVASTIN [Suspect]
     Indication: COLON CANCER
     Dosage: 670 MG, Q3W
     Route: 040
     Dates: start: 20090601, end: 20091012
  2. XELODA [Suspect]
     Indication: COLON CANCER
     Dosage: 2000 MG, UNK
     Route: 048
     Dates: start: 20090601, end: 20091012
  3. OXALIPLATIN [Suspect]
     Indication: COLON CANCER
     Dosage: 215 MG, Q3W
     Route: 042
     Dates: start: 20090601, end: 20091012
  4. SOLU-CORTEF [Concomitant]
     Indication: DRUG USE FOR UNKNOWN INDICATION
     Dosage: UNK
     Dates: start: 20090801
  5. ANTIEMETIC NOS [Concomitant]
     Indication: DRUG USE FOR UNKNOWN INDICATION

REACTIONS (8)
  - ANXIETY [None]
  - BRADYCARDIA [None]
  - CHEST DISCOMFORT [None]
  - DEPRESSED LEVEL OF CONSCIOUSNESS [None]
  - ERYTHEMA [None]
  - HYPERTENSION [None]
  - HYPOTENSION [None]
  - PRURITUS [None]
